FAERS Safety Report 21925179 (Version 4)
Quarter: 2023Q1

REPORT INFORMATION
  Report Type: Report from Study
  Country: BR (occurrence: BR)
  Receive Date: 20230130
  Receipt Date: 20230216
  Transmission Date: 20230418
  Serious: Yes (Life-Threatening, Hospitalization)
  Sender: FDA-Public Use
  Company Number: BR-002147023-NVSC2023BR017895

PATIENT
  Age: 35 Year
  Sex: Female
  Weight: 56.05 kg

DRUGS (9)
  1. CRIZANLIZUMAB [Suspect]
     Active Substance: CRIZANLIZUMAB
     Indication: Sickle cell disease
     Dosage: 5 MG/KG
     Route: 042
     Dates: start: 20201110
  2. FOLIC ACID [Concomitant]
     Active Substance: FOLIC ACID
     Indication: Sickle cell disease
     Dosage: UNK
     Route: 065
     Dates: start: 2020
  3. DULOXETINE [Concomitant]
     Active Substance: DULOXETINE
     Indication: Depression
     Dosage: UNK
     Route: 065
     Dates: start: 2016
  4. DULOXETINE [Concomitant]
     Active Substance: DULOXETINE
     Indication: Fibromyalgia
  5. VALERIAN [Concomitant]
     Active Substance: VALERIAN
     Indication: Panic disorder
     Dosage: UNK
     Route: 065
     Dates: start: 20211110
  6. MELATONIN [Concomitant]
     Active Substance: MELATONIN
     Indication: Panic disorder
     Dosage: UNK
     Route: 065
     Dates: start: 20211110
  7. CYCLOBENZAPRINE [Concomitant]
     Active Substance: CYCLOBENZAPRINE
     Indication: Sickle cell anaemia with crisis
     Dosage: UNK
     Route: 065
     Dates: start: 20220516, end: 20220516
  8. RIVOTRIL [Concomitant]
     Active Substance: CLONAZEPAM
     Indication: Sickle cell anaemia with crisis
     Dosage: UNK
     Route: 065
     Dates: start: 20220516, end: 20220516
  9. MORPHINE [Concomitant]
     Active Substance: MORPHINE
     Indication: Sickle cell anaemia with crisis
     Dosage: UNK
     Route: 065
     Dates: start: 20220516, end: 20220516

REACTIONS (1)
  - Pulmonary embolism [Recovered/Resolved]

NARRATIVE: CASE EVENT DATE: 20220517
